FAERS Safety Report 26195315 (Version 1)
Quarter: 2025Q4

REPORT INFORMATION
  Report Type: Report from Study
  Country: BR (occurrence: BR)
  Receive Date: 20251224
  Receipt Date: 20251224
  Transmission Date: 20260117
  Serious: Yes (Other)
  Sender: NOVARTIS
  Company Number: BR-002147023-NVSC2025BR095802

PATIENT
  Sex: Female

DRUGS (40)
  1. KISQALI [Suspect]
     Active Substance: RIBOCICLIB SUCCINATE
     Indication: Breast cancer metastatic
     Dosage: 2 DOSAGE FORM, QD (2 TABLETS PER DAY. IT TAKES 31 DAYS AND 7 DAYS OFF)
     Route: 048
     Dates: start: 202404
  2. KISQALI [Suspect]
     Active Substance: RIBOCICLIB SUCCINATE
     Indication: Breast cancer
  3. KISQALI [Suspect]
     Active Substance: RIBOCICLIB SUCCINATE
     Indication: Metastases to liver
  4. KISQALI [Suspect]
     Active Substance: RIBOCICLIB SUCCINATE
     Indication: Metastasis
  5. LETROZOLE [Suspect]
     Active Substance: LETROZOLE
     Indication: Breast cancer
     Dosage: 1 DOSAGE FORM, QD (1 PER DAY)
     Route: 065
     Dates: start: 202404
  6. LETROZOLE [Suspect]
     Active Substance: LETROZOLE
     Indication: Metastases to liver
  7. LETROZOLE [Suspect]
     Active Substance: LETROZOLE
     Indication: Metastasis
  8. CLARITHROMYCIN [Concomitant]
     Active Substance: CLARITHROMYCIN
     Indication: Product used for unknown indication
     Dosage: 1 DOSAGE FORM, Q12H
     Route: 048
  9. ZOLPIDEM [Concomitant]
     Active Substance: ZOLPIDEM TARTRATE
     Indication: Product used for unknown indication
     Dosage: 5 MG, CONTAINS 30 ORODISPERSIBLE TABLETS
     Route: 048
  10. QUETIAPINE [Concomitant]
     Active Substance: QUETIAPINE
     Indication: Product used for unknown indication
     Dosage: 25 MG
     Route: 048
  11. FLUVOXAMINE [Concomitant]
     Active Substance: FLUVOXAMINE
     Indication: Product used for unknown indication
     Dosage: 50 MG, CONTAINS 30 COATED TABLETS
     Route: 048
  12. SILICON [Concomitant]
     Active Substance: SILICON
     Indication: Hair disorder
     Dosage: 2 MG, 90 COATED TABLETS, ADULT USE - ARTIFICIALLY COLORED
     Route: 065
  13. SILICON [Concomitant]
     Active Substance: SILICON
     Indication: Skin disorder
  14. SILICON [Concomitant]
     Active Substance: SILICON
     Indication: Nail disorder
  15. FOLIC ACID [Concomitant]
     Active Substance: FOLIC ACID
     Indication: Hair disorder
     Dosage: 1 DOSAGE FORM, 90 COATED TABLETS, ADULT USE - ARTIFICIALLY COLORED
     Route: 065
  16. FOLIC ACID [Concomitant]
     Active Substance: FOLIC ACID
     Indication: Skin disorder
  17. FOLIC ACID [Concomitant]
     Active Substance: FOLIC ACID
     Indication: Nail disorder
  18. BIOTIN [Concomitant]
     Active Substance: BIOTIN
     Indication: Hair disorder
     Dosage: 1 DOSAGE FORM, 90 COATED TABLETS, ADULT USE - ARTIFICIALLY COLORED
     Route: 065
  19. BIOTIN [Concomitant]
     Active Substance: BIOTIN
     Indication: Skin disorder
  20. BIOTIN [Concomitant]
     Active Substance: BIOTIN
     Indication: Nail disorder
  21. VITAMIN B12 [Concomitant]
     Active Substance: CYANOCOBALAMIN
     Indication: Hair disorder
     Dosage: 1 DOSAGE FORM, 90 COATED TABLETS, ADULT USE - ARTIFICIALLY COLORED
     Route: 065
  22. VITAMIN B12 [Concomitant]
     Active Substance: CYANOCOBALAMIN
     Indication: Skin disorder
  23. VITAMIN B12 [Concomitant]
     Active Substance: CYANOCOBALAMIN
     Indication: Nail disorder
  24. VITAMIN C [Concomitant]
     Active Substance: ASCORBIC ACID
     Indication: Hair disorder
     Dosage: 1 DOSAGE FORM, 90 COATED TABLETS, ADULT USE - ARTIFICIALLY COLORED
     Route: 065
  25. VITAMIN C [Concomitant]
     Active Substance: ASCORBIC ACID
     Indication: Skin disorder
  26. VITAMIN C [Concomitant]
     Active Substance: ASCORBIC ACID
     Indication: Nail disorder
  27. VITAMIN E [Concomitant]
     Active Substance: .ALPHA.-TOCOPHEROL
     Indication: Hair disorder
     Dosage: 1 DOSAGE FORM, 90 COATED TABLETS, ADULT USE - ARTIFICIALLY COLORED
     Route: 065
  28. VITAMIN E [Concomitant]
     Active Substance: .ALPHA.-TOCOPHEROL
     Indication: Skin disorder
  29. VITAMIN E [Concomitant]
     Active Substance: .ALPHA.-TOCOPHEROL
     Indication: Nail disorder
  30. IRON [Concomitant]
     Active Substance: IRON
     Indication: Hair disorder
     Dosage: 1 DOSAGE FORM, 90 COATED TABLETS, ADULT USE - ARTIFICIALLY COLORED
     Route: 065
  31. IRON [Concomitant]
     Active Substance: IRON
     Indication: Skin disorder
  32. IRON [Concomitant]
     Active Substance: IRON
     Indication: Nail disorder
  33. MAGNESIUM [Concomitant]
     Active Substance: MAGNESIUM
     Indication: Hair disorder
     Dosage: 1 DOSAGE FORM, 90 COATED TABLETS, ADULT USE - ARTIFICIALLY COLORED
     Route: 065
  34. MAGNESIUM [Concomitant]
     Active Substance: MAGNESIUM
     Indication: Skin disorder
  35. MAGNESIUM [Concomitant]
     Active Substance: MAGNESIUM
     Indication: Nail disorder
  36. ZINC [Concomitant]
     Active Substance: ZINC
     Indication: Hair disorder
     Dosage: 1 DOSAGE FORM, 90 COATED TABLETS, ADULT USE - ARTIFICIALLY COLORED
     Route: 065
  37. ZINC [Concomitant]
     Active Substance: ZINC
     Indication: Skin disorder
  38. ZINC [Concomitant]
     Active Substance: ZINC
     Indication: Nail disorder
  39. VITAMIN D3 [Concomitant]
     Active Substance: CHOLECALCIFEROL
     Indication: Bone disorder
     Dosage: 2000 IU, 60 TABLETS
     Route: 065
  40. VITAMIN D3 [Concomitant]
     Active Substance: CHOLECALCIFEROL
     Indication: Tooth disorder

REACTIONS (7)
  - Pneumonia bacterial [Not Recovered/Not Resolved]
  - Pruritus [Not Recovered/Not Resolved]
  - Feeling hot [Unknown]
  - Alopecia [Not Recovered/Not Resolved]
  - Rash [Not Recovered/Not Resolved]
  - Pulmonary mass [Unknown]
  - Inappropriate schedule of product administration [Unknown]

NARRATIVE: CASE EVENT DATE: 20240101
